FAERS Safety Report 19985973 (Version 1)
Quarter: 2021Q4

REPORT INFORMATION
  Report Type: Spontaneous
  Country: AU (occurrence: AU)
  Receive Date: 20211022
  Receipt Date: 20211022
  Transmission Date: 20220303
  Serious: Yes (Hospitalization)
  Sender: FDA-Public Use
  Company Number: AU-MYLANLABS-2021M1075066

PATIENT
  Age: 54 Year
  Sex: Female

DRUGS (14)
  1. IDARUBICIN [Suspect]
     Active Substance: IDARUBICIN
     Indication: Acute myeloid leukaemia
     Dosage: UNK
     Route: 065
  2. IDARUBICIN [Suspect]
     Active Substance: IDARUBICIN
     Indication: Leukaemia recurrent
     Dosage: INDUCTION CHEMOTHERAPY ; IDA-FLAG REGIMEN
     Route: 065
     Dates: start: 20150402
  3. FLUDARABINE [Suspect]
     Active Substance: FLUDARABINE PHOSPHATE
     Indication: Acute myeloid leukaemia
     Dosage: INDUCTION CHEMOTHERAPY ; IDA-FLAG REGIMEN
     Route: 065
     Dates: start: 20150402
  4. FLUDARABINE [Suspect]
     Active Substance: FLUDARABINE PHOSPHATE
     Indication: Leukaemia recurrent
     Dosage: UNK
     Route: 065
     Dates: start: 20150812
  5. CYTARABINE [Suspect]
     Active Substance: CYTARABINE
     Indication: Acute myeloid leukaemia
     Dosage: INITIAL INDUCTION THERAPY AND TWO HIGH-DOSE CYTARABINE CONSOLIDATION CHEMOTHERAPY CYCLES
     Route: 065
  6. CYTARABINE [Suspect]
     Active Substance: CYTARABINE
     Indication: Leukaemia recurrent
     Dosage: INDUCTION CHEMOTHERAPY WITH HIGH DOSE ; IDA-FLAG REGIMEN
     Route: 065
     Dates: start: 20150402
  7. ETOPOSIDE [Suspect]
     Active Substance: ETOPOSIDE
     Indication: Acute myeloid leukaemia
     Dosage: UNK
     Route: 065
  8. FILGRASTIM [Concomitant]
     Active Substance: FILGRASTIM
     Indication: Product used for unknown indication
     Route: 065
     Dates: start: 20150402
  9. CEFOXITIN [Concomitant]
     Active Substance: CEFOXITIN SODIUM
     Indication: Mycobacterium abscessus infection
     Route: 065
     Dates: start: 20150421, end: 20160127
  10. TIGECYCLINE [Concomitant]
     Active Substance: TIGECYCLINE
     Indication: Mycobacterium abscessus infection
     Route: 065
     Dates: start: 20150421, end: 20160127
  11. AZITHROMYCIN ANHYDROUS [Concomitant]
     Active Substance: AZITHROMYCIN ANHYDROUS
     Indication: Mycobacterium abscessus infection
     Route: 065
     Dates: start: 20150421, end: 20160127
  12. AMIKACIN [Concomitant]
     Active Substance: AMIKACIN
     Indication: Mycobacterium abscessus infection
     Dates: start: 20150604
  13. MELPHALAN [Concomitant]
     Active Substance: MELPHALAN
     Indication: Bone marrow conditioning regimen
     Route: 065
     Dates: start: 20150812
  14. PIPERACILLIN SODIUM\TAZOBACTAM SODIUM [Concomitant]
     Active Substance: PIPERACILLIN SODIUM\TAZOBACTAM SODIUM
     Indication: Pyrexia
     Route: 065

REACTIONS (6)
  - Mycobacterium abscessus infection [Recovering/Resolving]
  - Immune reconstitution inflammatory syndrome [Recovering/Resolving]
  - Wound decomposition [Unknown]
  - Cellulitis [Unknown]
  - Ascites [Unknown]
  - Gastrointestinal disorder [Unknown]
